FAERS Safety Report 10182322 (Version 1)
Quarter: 2014Q2

REPORT INFORMATION
  Report Type: Spontaneous
  Country: US (occurrence: None)
  Receive Date: 20140519
  Receipt Date: 20140519
  Transmission Date: 20141212
  Serious: No
  Sender: FDA-Public Use
  Company Number: None

PATIENT
  Age: 62 Year
  Sex: Female
  Weight: 76.4 kg

DRUGS (12)
  1. GAMUNEX [Suspect]
     Indication: CHRONIC INFLAMMATORY DEMYELINATING POLYRADICULONEUROPATHY
     Route: 042
     Dates: start: 20140422, end: 20140509
  2. GAMUNEX [Suspect]
  3. DIPHENHYDRAMINE [Concomitant]
  4. ACETAMINOPHEN [Concomitant]
  5. ALPHA LIPOIC ACID [Concomitant]
  6. CALCIUM [Concomitant]
  7. CENTRUM SILVER [Concomitant]
  8. HCTZ [Concomitant]
  9. IBESARTAN [Concomitant]
  10. MAGNISUM OXIDE [Concomitant]
  11. NIACIN [Concomitant]
  12. OMEGA FISH OIL [Concomitant]

REACTIONS (2)
  - Infusion related reaction [None]
  - Rash [None]
